FAERS Safety Report 9970358 (Version 1)
Quarter: 2014Q1

REPORT INFORMATION
  Report Type: Report from Study
  Country: US (occurrence: US)
  Receive Date: 20140306
  Receipt Date: 20140306
  Transmission Date: 20141002
  Serious: No
  Sender: FDA-Public Use
  Company Number: US-ABBVIE-13P-163-1149607-00

PATIENT
  Age: 52 Year
  Sex: Female

DRUGS (3)
  1. HUMIRA [Suspect]
     Indication: PSORIASIS
     Dates: start: 20130815, end: 20130815
  2. HUMIRA [Suspect]
     Dates: start: 20130822, end: 20130822
  3. HUMIRA [Suspect]
     Dates: start: 20130905

REACTIONS (1)
  - Injection site pain [Recovered/Resolved]
